FAERS Safety Report 22250399 (Version 1)
Quarter: 2023Q2

REPORT INFORMATION
  Report Type: Report from Study
  Country: IT (occurrence: IT)
  Receive Date: 20230425
  Receipt Date: 20230425
  Transmission Date: 20230721
  Serious: Yes (Hospitalization, Other)
  Sender: FDA-Public Use
  Company Number: None

PATIENT

DRUGS (6)
  1. PEGASPARGASE [Suspect]
     Active Substance: PEGASPARGASE
     Indication: Product used for unknown indication
     Dosage: 1007.50 UI/DAY
     Route: 042
     Dates: start: 20230313, end: 20230313
  2. CYTARABINE [Suspect]
     Active Substance: CYTARABINE
     Indication: Product used for unknown indication
     Dosage: 2015 MG/DAY
     Route: 042
     Dates: start: 20230311, end: 20230312
  3. VINCRISTINE [Suspect]
     Active Substance: VINCRISTINE
     Indication: Product used for unknown indication
     Dosage: 1.5 MG/DAY
     Route: 042
     Dates: start: 20230312, end: 20230312
  4. METHOTREXATE (METHOTREXATE SODIUM) [Suspect]
     Active Substance: METHOTREXATE SODIUM
     Indication: Acute lymphocytic leukaemia recurrent
     Dosage: 100 MG INFUSION IN 30 MIN. + 906 MG SLOW INFUSION IN 35,5 H
     Route: 042
     Dates: start: 20230307, end: 20230309
  5. PURINETHOL [Suspect]
     Active Substance: MERCAPTOPURINE
     Indication: Product used for unknown indication
     Dosage: 100 MG/DAY
     Route: 048
     Dates: start: 20230307, end: 20230311
  6. TARGOSID [Concomitant]
     Active Substance: TEICOPLANIN
     Indication: Product used for unknown indication
     Dosage: 400 MG/DAY
     Route: 042
     Dates: start: 20230320, end: 20230323

REACTIONS (4)
  - Hypogammaglobulinaemia [Unknown]
  - Febrile neutropenia [Recovered/Resolved]
  - Pancytopenia [Recovering/Resolving]
  - Anaemia [Recovered/Resolved]

NARRATIVE: CASE EVENT DATE: 20230323
